FAERS Safety Report 7298379-9 (Version None)
Quarter: 2011Q1

REPORT INFORMATION
  Report Type: 
  Country: None (occurrence: None)
  Receive Date: 20110217
  Receipt Date: 20110208
  Transmission Date: 20110831
  Serious: Yes (Hospitalization, Other)
  Sender: FDA-Public Use
  Company Number: CA-US-EMD SERONO, INC.-230263J10CAN

PATIENT
  Sex: Female

DRUGS (20)
  1. TRIDURAL [Concomitant]
  2. VITAMIN E [Concomitant]
  3. DIAZEPAM [Concomitant]
  4. ZANTAC [Concomitant]
  5. PREVACID [Concomitant]
  6. REBIF [Suspect]
     Dates: start: 20100101, end: 20110101
  7. TERAZOSIN [Concomitant]
  8. POTASSIUM [Concomitant]
  9. CRANBERRY PILLS [Concomitant]
  10. VITAMIN D [Concomitant]
  11. OXYCONTIN [Concomitant]
  12. ASCORBIC ACID [Concomitant]
  13. REBIF [Suspect]
     Indication: RELAPSING-REMITTING MULTIPLE SCLEROSIS
     Dates: start: 20100209, end: 20100101
  14. PROMETRIUM [Concomitant]
  15. ESTRACE [Concomitant]
  16. VITAMIN B [Concomitant]
  17. BACLOFEN [Concomitant]
  18. PERCOCET [Concomitant]
  19. VITAMIN A [Concomitant]
  20. GARLIC PILLS [Concomitant]

REACTIONS (8)
  - DEHYDRATION [None]
  - GAIT DISTURBANCE [None]
  - CARTILAGE INJURY [None]
  - INJECTION SITE REACTION [None]
  - INAPPROPRIATE SCHEDULE OF DRUG ADMINISTRATION [None]
  - BRONCHITIS [None]
  - MULTIPLE SCLEROSIS RELAPSE [None]
  - INJECTION SITE ERYTHEMA [None]
